FAERS Safety Report 10102249 (Version 1)
Quarter: 2014Q2

REPORT INFORMATION
  Report Type: Spontaneous
  Country: US (occurrence: US)
  Receive Date: 20140424
  Receipt Date: 20140424
  Transmission Date: 20141212
  Serious: No
  Sender: FDA-Public Use
  Company Number: US-PFIZER INC-2014113068

PATIENT
  Age: 66 Year
  Sex: Female
  Weight: 126 kg

DRUGS (3)
  1. TOVIAZ [Suspect]
     Indication: POLLAKIURIA
     Dosage: 8 MG, DAILY
     Route: 048
     Dates: start: 201403
  2. TOVIAZ [Suspect]
     Indication: HYPERTONIC BLADDER
  3. LISINOPRIL [Concomitant]
     Indication: HYPERTENSION
     Dosage: UNK

REACTIONS (3)
  - Pollakiuria [Not Recovered/Not Resolved]
  - Sleep disorder [Unknown]
  - Off label use [Not Recovered/Not Resolved]
